FAERS Safety Report 12500682 (Version 1)
Quarter: 2016Q2

REPORT INFORMATION
  Report Type: Spontaneous
  Country: KR (occurrence: KR)
  Receive Date: 20160627
  Receipt Date: 20160627
  Transmission Date: 20160815
  Serious: Yes (Death, Hospitalization, Other)
  Sender: FDA-Public Use
  Company Number: KR-CELGENEUS-286-50794-13013842

PATIENT
  Age: 70 Year
  Sex: Male
  Weight: 52.3 kg

DRUGS (7)
  1. VIDAZA [Suspect]
     Active Substance: AZACITIDINE
     Indication: MYELODYSPLASTIC SYNDROME
     Route: 065
     Dates: start: 20120725
  2. ULTRA [Concomitant]
     Indication: ANALGESIC THERAPY
     Dosage: 1T
     Route: 048
     Dates: start: 20120906, end: 20120914
  3. VIDAZA [Suspect]
     Active Substance: AZACITIDINE
     Route: 065
     Dates: start: 20120822, end: 20120828
  4. TARGIN [Concomitant]
     Active Substance: NALOXONE HYDROCHLORIDE\OXYCODONE HYDROCHLORIDE
     Indication: ANALGESIC THERAPY
     Dosage: 500 MILLIGRAM
     Route: 048
     Dates: start: 20120718, end: 20120723
  5. MUCOSTA [Concomitant]
     Active Substance: REBAMIPIDE
     Indication: GASTROINTESTINAL DISORDER
     Dosage: 1T
     Route: 048
     Dates: start: 20120718, end: 20120914
  6. HYDROXY [Concomitant]
     Indication: PROPHYLAXIS
     Route: 048
     Dates: start: 20120718, end: 20120909
  7. MOSAPRIDE [Concomitant]
     Active Substance: MOSAPRIDE
     Indication: GASTROINTESTINAL DISORDER
     Dosage: 1.5T
     Route: 048
     Dates: start: 20120718, end: 20120914

REACTIONS (4)
  - Cerebral haemorrhage [Fatal]
  - Upper gastrointestinal haemorrhage [Recovered/Resolved]
  - Thrombocytopenia [Not Recovered/Not Resolved]
  - Thrombocytopenia [Recovered/Resolved]

NARRATIVE: CASE EVENT DATE: 20120821
